FAERS Safety Report 12718181 (Version 3)
Quarter: 2017Q1

REPORT INFORMATION
  Report Type: Spontaneous
  Country: US (occurrence: US)
  Receive Date: 20160906
  Receipt Date: 20170207
  Transmission Date: 20170428
  Serious: Yes (Other)
  Sender: FDA-Public Use
  Company Number: US-ASTRAZENECA-2016SE92693

PATIENT
  Age: 59 Year
  Sex: Female

DRUGS (26)
  1. FASLODEX [Suspect]
     Active Substance: FULVESTRANT
     Indication: BREAST CANCER METASTATIC
     Dosage: MONTHLY
     Route: 030
     Dates: start: 20160113, end: 20161111
  2. PERJETA [Concomitant]
     Active Substance: PERTUZUMAB
     Indication: BREAST CANCER METASTATIC
     Dosage: 6(8 LD)- Q21D X 6
     Dates: start: 20150708
  3. ZOFRAN [Concomitant]
     Active Substance: ONDANSETRON HYDROCHLORIDE
     Route: 048
  4. ACYCLOVIR. [Concomitant]
     Active Substance: ACYCLOVIR
  5. FENTANYL. [Concomitant]
     Active Substance: FENTANYL
     Dosage: ONE PATCH EVERY 3 DAYS :25 MCG/FLR
     Route: 062
  6. IBRANCE [Suspect]
     Active Substance: PALBOCICLIB
     Indication: BREAST CANCER METASTATIC
     Route: 048
     Dates: start: 20161027
  7. EMLA [Concomitant]
     Active Substance: LIDOCAINE\PRILOCAINE
     Dosage: APPLY 1 HOUR PRIOR TO FASLODEX INJECTION 2 .5-2.5 %
     Route: 061
  8. MS CONTIN [Concomitant]
     Active Substance: MORPHINE SULFATE
     Indication: PAIN
     Route: 048
  9. HERCEPTIN [Concomitant]
     Active Substance: TRASTUZUMAB
     Indication: BREAST CANCER METASTATIC
     Dosage: EVERY THREE WEEKS
     Dates: start: 20161102
  10. XGEVA [Concomitant]
     Active Substance: DENOSUMAB
     Indication: METASTASES TO BONE
     Dosage: 6 WEEKS
     Route: 058
     Dates: start: 20160113
  11. IBRANCE [Suspect]
     Active Substance: PALBOCICLIB
     Indication: MUCOSAL INFLAMMATION
     Route: 048
     Dates: start: 20160829, end: 20161027
  12. AROMASIN [Concomitant]
     Active Substance: EXEMESTANE
     Indication: BREAST CANCER METASTATIC
  13. PERCOCET [Concomitant]
     Active Substance: ACETAMINOPHEN\OXYCODONE HYDROCHLORIDE
     Dosage: Q+6 HOURS PRN PAIN 5-325 RNG
     Route: 048
  14. IBRANCE [Suspect]
     Active Substance: PALBOCICLIB
     Indication: BREAST CANCER METASTATIC
     Route: 048
     Dates: start: 20160829, end: 20161027
  15. IBRANCE [Suspect]
     Active Substance: PALBOCICLIB
     Indication: MUCOSAL INFLAMMATION
     Route: 048
     Dates: start: 20161027
  16. PERJETA [Concomitant]
     Active Substance: PERTUZUMAB
     Indication: BREAST CANCER METASTATIC
     Dosage: EVERY THREE WEEKS
     Dates: start: 20161102
  17. FENTANYL. [Concomitant]
     Active Substance: FENTANYL
     Dosage: ONCE EVERY THREE DAYS 25 MCG/HR
     Route: 062
  18. XGEVA [Concomitant]
     Active Substance: DENOSUMAB
     Indication: METASTASES TO BONE
     Dosage: MONTHLY
     Route: 058
     Dates: start: 20140816
  19. FASLODEX [Suspect]
     Active Substance: FULVESTRANT
     Indication: BREAST CANCER METASTATIC
     Dosage: MONTHLY
     Route: 030
  20. ZOLPIDEM [Concomitant]
     Active Substance: ZOLPIDEM\ZOLPIDEM TARTRATE
     Route: 048
  21. PERJETA [Concomitant]
     Active Substance: PERTUZUMAB
     Indication: BREAST CANCER METASTATIC
     Dosage: EVERY THREE WEEKS
     Dates: start: 20141029
  22. HERCEPTIN [Concomitant]
     Active Substance: TRASTUZUMAB
     Indication: BREAST CANCER METASTATIC
     Dosage: EVERY THREE WEEKS
     Dates: start: 20140816
  23. LETROZOLE. [Concomitant]
     Active Substance: LETROZOLE
  24. PREVIDENT [Concomitant]
     Active Substance: SODIUM FLUORIDE
     Route: 004
  25. OXYCODONE-ACETAMINOPHEN [Concomitant]
     Active Substance: ACETAMINOPHEN\OXYCODONE HYDROCHLORIDE
     Indication: PAIN
     Dosage: ONCE EVERY 6 FLOURS ONLY AS NEEDED FOR PAIN 5-325 MG
     Route: 048
  26. XGEVA [Concomitant]
     Active Substance: DENOSUMAB
     Indication: METASTASES TO BONE
     Dosage: MONTHLY
     Route: 058
     Dates: start: 20161116

REACTIONS (5)
  - Mucosal inflammation [Unknown]
  - Malignant neoplasm progression [Unknown]
  - Back pain [Unknown]
  - Oral infection [Recovered/Resolved]
  - Metastases to lymph nodes [Unknown]

NARRATIVE: CASE EVENT DATE: 2015
